FAERS Safety Report 5285535-4 (Version None)
Quarter: 2007Q1

REPORT INFORMATION
  Report Type: 
  Country: None (occurrence: None)
  Receive Date: 20061227
  Receipt Date: 20060928
  Transmission Date: 20070707
  Serious: Yes (Other)
  Sender: FDA-Public Use
  Company Number: A03200606016

PATIENT
  Sex: Male

DRUGS (1)
  1. AMBIEN [Suspect]
     Dosage: 12.5 MG QD - ORAL
     Route: 048

REACTIONS (11)
  - ABNORMAL BEHAVIOUR [None]
  - AGGRESSION [None]
  - AGITATED DEPRESSION [None]
  - ANXIETY [None]
  - BINGE EATING [None]
  - DISTURBANCE IN ATTENTION [None]
  - DRUG INEFFECTIVE [None]
  - HALLUCINATION [None]
  - NIGHTMARE [None]
  - SLEEP WALKING [None]
  - WEIGHT INCREASED [None]
